FAERS Safety Report 10390287 (Version 8)
Quarter: 2016Q4

REPORT INFORMATION
  Report Type: Spontaneous
  Country: US (occurrence: US)
  Receive Date: 20140818
  Receipt Date: 20161118
  Transmission Date: 20170206
  Serious: Yes (Hospitalization, Other)
  Sender: FDA-Public Use
  Company Number: US-PFIZER INC-2014224126

PATIENT
  Age: 53 Year
  Sex: Male

DRUGS (5)
  1. SUTENT [Suspect]
     Active Substance: SUNITINIB MALATE
     Dosage: UNK, 1 A DAY 4 WEEKS ON 2 WEEKS OFF
  2. SUTENT [Suspect]
     Active Substance: SUNITINIB MALATE
     Dosage: UNK (2 WEEKS ON / 1 WEEK OFF)
     Dates: start: 201403
  3. SUTENT [Suspect]
     Active Substance: SUNITINIB MALATE
     Dosage: UNK (10DAYS ON / 7 DAYS OFF)
  4. SUTENT [Suspect]
     Active Substance: SUNITINIB MALATE
     Indication: METASTATIC RENAL CELL CARCINOMA
     Dosage: 50 MG, DAILY (10 DAYS ON; 7 DAYS OFF)
     Route: 048
     Dates: start: 20140228, end: 20140924
  5. SUTENT [Suspect]
     Active Substance: SUNITINIB MALATE
     Dosage: UNK
     Route: 048

REACTIONS (10)
  - Hyperkeratosis [Not Recovered/Not Resolved]
  - Pain in extremity [Not Recovered/Not Resolved]
  - Disease progression [Not Recovered/Not Resolved]
  - Pneumothorax [Not Recovered/Not Resolved]
  - Hyperkeratosis [Unknown]
  - Skin exfoliation [Unknown]
  - Drug intolerance [Recovered/Resolved]
  - Hair colour changes [Not Recovered/Not Resolved]
  - Blister [Unknown]
  - Metastatic renal cell carcinoma [Not Recovered/Not Resolved]

NARRATIVE: CASE EVENT DATE: 201406
